FAERS Safety Report 13440776 (Version 3)
Quarter: 2017Q2

REPORT INFORMATION
  Report Type: Spontaneous
  Country: IL (occurrence: IL)
  Receive Date: 20170413
  Receipt Date: 20170608
  Transmission Date: 20170830
  Serious: Yes (Other)
  Sender: FDA-Public Use
  Company Number: IL-ACTELION-A-CH2017-152047

PATIENT
  Age: 83 Year
  Sex: Male

DRUGS (7)
  1. VALCHLOR [Suspect]
     Active Substance: MECHLORETHAMINE
     Dosage: 2-3 TIMES PER WEEK
     Route: 061
     Dates: start: 20170326
  2. CARDILOC [Concomitant]
     Active Substance: BISOPROLOL FUMARATE
  3. OMEPRADEX [Concomitant]
     Active Substance: OMEPRAZOLE
  4. CARTIA XT [Concomitant]
     Active Substance: DILTIAZEM HYDROCHLORIDE
  5. ENALAPRIL [Concomitant]
     Active Substance: ENALAPRIL
  6. STATOR [Concomitant]
  7. VALCHLOR [Suspect]
     Active Substance: MECHLORETHAMINE
     Indication: MYCOSIS FUNGOIDES
     Dosage: UNK UNK, OD
     Route: 061
     Dates: start: 201608, end: 20170201

REACTIONS (4)
  - Balance disorder [Recovered/Resolved]
  - Myalgia [Recovered/Resolved]
  - Headache [Recovered/Resolved]
  - Nausea [Recovered/Resolved]

NARRATIVE: CASE EVENT DATE: 201701
